FAERS Safety Report 9725612 (Version 5)
Quarter: 2014Q2

REPORT INFORMATION
  Report Type: Spontaneous
  Country: US (occurrence: None)
  Receive Date: 20131127
  Receipt Date: 20140620
  Transmission Date: 20141212
  Serious: Yes (Hospitalization, Other)
  Sender: FDA-Public Use
  Company Number: 2012-001697

PATIENT
  Age: 73 Year
  Sex: Female
  Weight: 48.5 kg

DRUGS (18)
  1. ACTONEL [Suspect]
     Route: 048
     Dates: start: 200511, end: 200801
  2. ACTONEL [Suspect]
     Route: 048
     Dates: start: 200511, end: 200801
  3. FOSAMAX [Suspect]
     Indication: OSTEOPOROSIS
     Route: 048
     Dates: start: 1995
  4. FOSAMAX [Suspect]
     Indication: OSTEOPOROSIS PROPHYLAXIS
     Route: 048
     Dates: start: 1995
  5. FOSAMAX [Suspect]
     Indication: OSTEOPENIA
     Route: 048
     Dates: start: 1995
  6. BONIVA [Suspect]
     Indication: OSTEOPOROSIS
     Dates: start: 200801, end: 2010
  7. BONIVA [Suspect]
     Indication: OSTEOPOROSIS PROPHYLAXIS
     Dates: start: 200801, end: 2010
  8. BONIVA [Suspect]
     Indication: OSTEOPENIA
     Dates: start: 200801, end: 2010
  9. NORVASC (AMLODIPINE BESILATE) [Concomitant]
  10. TRAZODONE (TRAZODONE) [Concomitant]
  11. ZOLOFT (SERTRALINE HYDROCHLORIDE) [Concomitant]
  12. GLUCOSAMINE CHONDROITIN /01625901/ (CHONDROITIN SULFATE, GLUCOSAMINE) [Concomitant]
  13. MULTIVITAMIN AND MINERAL SUPPLEMENT (MINERALS NOS, VITAMIN NOS) [Concomitant]
  14. CALCIUM W/COLECALCIFEROL (CALCIUM, COLECALCIFEROL) [Concomitant]
  15. ASPIRIN (ACETYLSALICYLIC ACID) [Concomitant]
  16. ZOCOR (SIMVASTATIN) [Concomitant]
  17. PREMARIN (ESTROGENS CONJUGATED) [Concomitant]
  18. DYAZIDE (HYDROCHLOROTHIAZIDE, TRIAMTERENE) [Concomitant]

REACTIONS (19)
  - Femur fracture [None]
  - Fall [None]
  - Salmonellosis [None]
  - Osteomyelitis salmonella [None]
  - Erythema [None]
  - Local swelling [None]
  - Pain in extremity [None]
  - Comminuted fracture [None]
  - Fracture displacement [None]
  - Fracture delayed union [None]
  - Stress fracture [None]
  - Low turnover osteopathy [None]
  - Post procedural discharge [None]
  - Abscess limb [None]
  - Cellulitis [None]
  - Postoperative wound infection [None]
  - Postoperative stitch sinus [None]
  - Wound secretion [None]
  - Anaemia [None]
